FAERS Safety Report 6723938 (Version 5)
Quarter: 2012Q4

REPORT INFORMATION
  Report Type: 
  Country: CN (occurrence: CN)
  Receive Date: 20080811
  Receipt Date: 20121225
  Transmission Date: 20130627
  Serious: Yes (Death, Hospitalization, Other)
  Sender: FDA-Public Use
  Company Number: PHHY2008CN16621

PATIENT
  Age: 25 Year
  Sex: Male
  Weight: 59 kg

DRUGS (2)
  1. SEBIVO [Suspect]
     Indication: CHRONIC HEPATITIS B
     Dosage: 600 mg QD
     Route: 048
     Dates: start: 20071010, end: 20080719
  2. LAMIVUDINE [Concomitant]
     Dosage: UNK UKN, UNK
     Dates: start: 20080719

REACTIONS (56)
  - Multi-organ failure [Fatal]
  - Circulatory collapse [Fatal]
  - Respiratory failure [Fatal]
  - Pulmonary embolism [Unknown]
  - Haemoptysis [Unknown]
  - Heart rate increased [Unknown]
  - Dyspnoea [Unknown]
  - Cough [Unknown]
  - Renal impairment [Unknown]
  - Urine bilirubin increased [Unknown]
  - Generalised oedema [Unknown]
  - Oliguria [Unknown]
  - Urine ketone body present [Unknown]
  - Central venous pressure decreased [Unknown]
  - Protein urine present [Unknown]
  - Blood urine present [Unknown]
  - Blood urea increased [Unknown]
  - Blood uric acid increased [Unknown]
  - Blood bilirubin increased [Unknown]
  - Loss of consciousness [Unknown]
  - Blood bicarbonate increased [Unknown]
  - Blood pressure immeasurable [Unknown]
  - Bilirubin conjugated increased [Unknown]
  - Blood bilirubin unconjugated increased [Unknown]
  - Base excess increased [Unknown]
  - Blood lactate dehydrogenase increased [Unknown]
  - Alanine aminotransferase increased [Unknown]
  - White blood cells urine positive [Unknown]
  - Hypotension [Unknown]
  - Aspartate aminotransferase increased [Unknown]
  - Orthopnoea [Unknown]
  - Blood pH decreased [Unknown]
  - Neutrophil percentage increased [Unknown]
  - Blood gases abnormal [Unknown]
  - Decreased appetite [Unknown]
  - Sinus tachycardia [Unknown]
  - Nausea [Unknown]
  - Vomiting [Unknown]
  - Nephrolithiasis [Unknown]
  - Renal disorder [Unknown]
  - Lymphadenopathy [Unknown]
  - Rhabdomyolysis [Unknown]
  - Blood creatine phosphokinase MB increased [Unknown]
  - Platelet count decreased [Unknown]
  - Blood creatine phosphokinase increased [Unknown]
  - Myalgia [Unknown]
  - Muscle swelling [Unknown]
  - Pain in extremity [Unknown]
  - Muscular weakness [Unknown]
  - Pain [Unknown]
  - Blood potassium decreased [Unknown]
  - Hepatitis B DNA increased [Unknown]
  - Renal failure acute [Unknown]
  - Lactic acidosis [Unknown]
  - Asthenia [Unknown]
  - Fall [Unknown]
